FAERS Safety Report 8968672 (Version 1)
Quarter: 2012Q4

REPORT INFORMATION
  Report Type: 
  Country: FR (occurrence: FR)
  Receive Date: 20121218
  Receipt Date: 20121218
  Transmission Date: 20130627
  Serious: Yes (Hospitalization)
  Sender: FDA-Public Use
  Company Number: FR-009507513-1109FRA00041

PATIENT
  Age: 67 Year
  Sex: Male
  Weight: 67 kg

DRUGS (4)
  1. JANUVIA [Suspect]
     Indication: TYPE 2 DIABETES MELLITUS
     Dosage: 100 mg, qd
     Route: 048
     Dates: start: 201104, end: 20110722
  2. GLUCOPHAGE [Suspect]
     Indication: TYPE 2 DIABETES MELLITUS
     Dosage: 850 mg, tid
     Route: 048
     Dates: start: 201104, end: 20110526
  3. GLUCOPHAGE [Suspect]
     Dosage: 850 mg, tid
     Route: 048
     Dates: start: 20110602, end: 20110722
  4. INEXIUM [Concomitant]
     Indication: OESOPHAGITIS ULCERATIVE
     Dosage: 20 mg, bid
     Route: 048
     Dates: start: 201104

REACTIONS (3)
  - Hepatic steatosis [Recovering/Resolving]
  - Mixed liver injury [Recovering/Resolving]
  - Jaundice [Recovering/Resolving]
